FAERS Safety Report 10048214 (Version 1)
Quarter: 2014Q1

REPORT INFORMATION
  Report Type: Spontaneous
  Country: US (occurrence: US)
  Receive Date: 20140331
  Receipt Date: 20140331
  Transmission Date: 20141002
  Serious: No
  Sender: FDA-Public Use
  Company Number: US-PFIZER INC-2014087925

PATIENT
  Age: 55 Year
  Sex: Female
  Weight: 87.08 kg

DRUGS (5)
  1. NEURONTIN [Suspect]
     Dosage: UNK
     Dates: start: 200705, end: 2007
  2. NEURONTIN [Suspect]
     Dosage: 300 MG, 3X/DAY
     Dates: start: 2007
  3. MS CONTIN [Concomitant]
     Dosage: 15 MG, 3X/DAY
  4. PERCOCET [Concomitant]
     Dosage: 7.5/325 MG, 3X/DAY
  5. TAPENTADOL [Concomitant]
     Indication: BREAKTHROUGH PAIN
     Dosage: UNK, AS NEEDED

REACTIONS (1)
  - Drug ineffective [Unknown]
